FAERS Safety Report 23391961 (Version 2)
Quarter: 2024Q1

REPORT INFORMATION
  Report Type: Spontaneous
  Country: US (occurrence: US)
  Receive Date: 20240111
  Receipt Date: 20240116
  Transmission Date: 20240410
  Serious: No
  Sender: FDA-Public Use
  Company Number: US-ABBVIE-5578750

PATIENT
  Sex: Female

DRUGS (2)
  1. RINVOQ [Suspect]
     Active Substance: UPADACITINIB
     Indication: Crohn^s disease
     Dosage: END DATE: 2023
     Route: 048
     Dates: start: 202308
  2. RINVOQ [Suspect]
     Active Substance: UPADACITINIB
     Indication: Crohn^s disease
     Route: 048
     Dates: start: 202311

REACTIONS (4)
  - Haematuria [Unknown]
  - Chromaturia [Recovered/Resolved]
  - Urinary tract infection [Unknown]
  - Blood urine present [Recovered/Resolved]

NARRATIVE: CASE EVENT DATE: 20230101
